FAERS Safety Report 5680550-0 (Version None)
Quarter: 2008Q1

REPORT INFORMATION
  Report Type: 
  Country: None (occurrence: None)
  Receive Date: 20080326
  Receipt Date: 20080325
  Transmission Date: 20080703
  Serious: Yes (Hospitalization)
  Sender: FDA-Public Use
  Company Number: AU-MERCK-0803AUS00196

PATIENT
  Age: 63 Year
  Sex: Female
  Weight: 69 kg

DRUGS (3)
  1. FOSAMAX [Suspect]
     Indication: OSTEOPOROSIS
     Route: 048
     Dates: start: 20030101
  2. CELECOXIB [Concomitant]
     Indication: ANALGESIA
     Route: 065
     Dates: start: 20040101
  3. OMEPRAZOLE MAGNESIUM [Concomitant]
     Indication: PEPTIC ULCER
     Route: 065
     Dates: start: 20030101

REACTIONS (1)
  - FEMORAL NECK FRACTURE [None]
